FAERS Safety Report 14424551 (Version 1)
Quarter: 2018Q1

REPORT INFORMATION
  Report Type: Report from Study
  Country: IL (occurrence: IL)
  Receive Date: 20180123
  Receipt Date: 20180123
  Transmission Date: 20180509
  Serious: Yes (Death, Other)
  Sender: FDA-Public Use
  Company Number: IL-MYLANLABS-2018M1004817

PATIENT
  Age: 62 Year
  Sex: Male

DRUGS (16)
  1. CYTARABINE. [Suspect]
     Active Substance: CYTARABINE
     Indication: LYMPHOMA
     Dosage: IN 2010, 2 CYCLES OF RITUXIMAB AND ESHAP
     Route: 065
     Dates: start: 2010
  2. VINCRISTINE [Suspect]
     Active Substance: VINCRISTINE
     Indication: B-CELL LYMPHOMA
     Dosage: SIX CYCLES OF R-CHOP
     Route: 065
     Dates: start: 2005
  3. FLUDARABINE [Suspect]
     Active Substance: FLUDARABINE PHOSPHATE
     Indication: B-CELL LYMPHOMA
     Dosage: RITUXIMAB WITH THREE CYCLES OF THE FLUDARABINE, CYCLOPHOSPHAMIDE, AND MITOXANTRONE REGIMEN
     Route: 065
  4. PREDNISONE. [Suspect]
     Active Substance: PREDNISONE
     Indication: B-CELL LYMPHOMA
     Dosage: SIX CYCLES OF R-CHOP
     Route: 065
     Dates: start: 2005
  5. RITUXIMAB. [Suspect]
     Active Substance: RITUXIMAB
     Dosage: RITUXIMAB WITH THREE CYCLES OF THE FLUDARABINE, CYCLOPHOSPHAMIDE, AND MITOXANTRONE REGIMEN
     Route: 065
  6. CISPLATIN. [Suspect]
     Active Substance: CISPLATIN
     Indication: LYMPHOMA
     Dosage: IN 2010, 2 CYCLES OF RITUXIMAB AND ESHAP
     Route: 065
     Dates: start: 2010
  7. CYCLOPHOSPHAMIDE. [Suspect]
     Active Substance: CYCLOPHOSPHAMIDE
     Indication: B-CELL LYMPHOMA
     Dosage: SIX CYCLES OF R-CHOP
     Route: 065
     Dates: start: 2005
  8. RITUXIMAB. [Suspect]
     Active Substance: RITUXIMAB
     Indication: B-CELL LYMPHOMA
     Dosage: SIX CYCLES OF R-CHOP
     Route: 065
     Dates: start: 2005
  9. RITUXIMAB. [Suspect]
     Active Substance: RITUXIMAB
     Dosage: BENDAMUSTINE AND RITUXIMAB (FIVE CYCLES)
     Route: 065
  10. BENDAMUSTINE [Suspect]
     Active Substance: BENDAMUSTINE
     Indication: LYMPHOMA
     Dosage: BENDAMUSTINE AND RITUXIMAB (FIVE CYCLES)
     Route: 065
  11. ETOPOSIDE. [Suspect]
     Active Substance: ETOPOSIDE
     Indication: LYMPHOMA
     Dosage: IN 2010, 2 CYCLES OF RITUXIMAB AND ESHAP
     Route: 065
     Dates: start: 2010
  12. PREDNISONE. [Suspect]
     Active Substance: PREDNISONE
     Indication: LYMPHOMA
     Dosage: IN 2010, 2 CYCLES OF RITUXIMAB AND ESHAP
     Route: 065
     Dates: start: 2010
  13. CYCLOPHOSPHAMIDE. [Suspect]
     Active Substance: CYCLOPHOSPHAMIDE
     Dosage: RITUXIMAB WITH THREE CYCLES OF THE FLUDARABINE, CYCLOPHOSPHAMIDE, AND MITOXANTRONE REGIMEN
     Route: 065
  14. ADRIAMYCIN [Suspect]
     Active Substance: DOXORUBICIN HYDROCHLORIDE
     Indication: B-CELL LYMPHOMA
     Dosage: SIX CYCLES OF R-CHOP
     Route: 065
     Dates: start: 2005
  15. MITOXANTRONE [Suspect]
     Active Substance: MITOXANTRONE HYDROCHLORIDE
     Indication: B-CELL LYMPHOMA
     Dosage: RITUXIMAB WITH THREE CYCLES OF THE FLUDARABINE, CYCLOPHOSPHAMIDE, AND MITOXANTRONE REGIMEN
     Route: 065
  16. RITUXIMAB. [Suspect]
     Active Substance: RITUXIMAB
     Dosage: IN 2010, 2 CYCLES OF RITUXIMAB AND ESHAP
     Route: 065
     Dates: start: 2010

REACTIONS (1)
  - Central nervous system enteroviral infection [Fatal]
